FAERS Safety Report 9973411 (Version 2)
Quarter: 2015Q4

REPORT INFORMATION
  Report Type: Spontaneous
  Country: US (occurrence: US)
  Receive Date: 20140306
  Receipt Date: 20151026
  Transmission Date: 20160305
  Serious: Yes (Other)
  Sender: FDA-Public Use
  Company Number: US-PFIZER INC-2014061725

PATIENT
  Sex: Female

DRUGS (2)
  1. LIPITOR [Suspect]
     Active Substance: ATORVASTATIN CALCIUM
     Indication: BLOOD CHOLESTEROL INCREASED
     Dosage: UNK
     Route: 048
     Dates: start: 2000
  2. LIPITOR [Suspect]
     Active Substance: ATORVASTATIN CALCIUM
     Dosage: 40 MG, 1X/DAY
     Route: 048
     Dates: start: 2004, end: 2010

REACTIONS (1)
  - Type 2 diabetes mellitus [Not Recovered/Not Resolved]
